FAERS Safety Report 24195483 (Version 1)
Quarter: 2024Q3

REPORT INFORMATION
  Report Type: Report from Study
  Country: GB (occurrence: GB)
  Receive Date: 20240809
  Receipt Date: 20240809
  Transmission Date: 20241016
  Serious: Yes (Hospitalization)
  Sender: BAXTER
  Company Number: GB-BAXTER-2024BAX022482

PATIENT
  Sex: Male

DRUGS (13)
  1. WATER FOR INJECTION [Suspect]
     Active Substance: WATER
     Indication: Parenteral nutrition
     Dosage: COMPOUND BAG FOR 7 NIGHTS
     Route: 065
  2. DEXTROSE [Suspect]
     Active Substance: DEXTROSE\DEXTROSE MONOHYDRATE
     Indication: Parenteral nutrition
     Dosage: COMPOUND BAG FOR 7 NIGHTS
     Route: 065
  3. SYNTHAMIN [Suspect]
     Active Substance: AMINO ACIDS
     Indication: Parenteral nutrition
     Dosage: COMPOUND BAG FOR 7 NIGHTS
     Route: 065
  4. CERNEVIT [Suspect]
     Active Substance: VITAMINS
     Indication: Parenteral nutrition
     Dosage: COMPOUND BAG FOR 7 NIGHTS
     Route: 065
  5. IRON\MINERALS\POTASSIUM IOD\SODIUM FLUORIDE\SODIUM MOLYBDATE\SODIUM SE [Suspect]
     Active Substance: IRON\MINERALS\POTASSIUM IOD\SODIUM FLUORIDE\SODIUM MOLYBDATE\SODIUM SELENITE\ZINC
     Indication: Parenteral nutrition
     Dosage: COMPOUND BAG FOR 7 NIGHTS
     Route: 065
  6. CALCIUM CHLORIDE [Suspect]
     Active Substance: CALCIUM CHLORIDE
     Indication: Parenteral nutrition
     Dosage: COMPOUND BAG FOR 7 NIGHTS
     Route: 065
  7. MAGNESIUM SULFATE [Suspect]
     Active Substance: MAGNESIUM SULFATE\MAGNESIUM SULFATE HEPTAHYDRATE
     Indication: Parenteral nutrition
     Dosage: COMPOUND BAG FOR 7 NIGHTS
     Route: 065
  8. POTASSIUM CHLORIDE [Suspect]
     Active Substance: POTASSIUM CHLORIDE
     Indication: Parenteral nutrition
     Dosage: COMPOUND BAG FOR 7 NIGHTS
     Route: 065
  9. SODIUM CHLORIDE [Suspect]
     Active Substance: SODIUM CHLORIDE
     Indication: Parenteral nutrition
     Dosage: COMPOUND BAG FOR 7 NIGHTS
     Route: 065
  10. SODIUM GLYCEROPHOSPHATE [Suspect]
     Active Substance: SODIUM GLYCEROPHOSPHATE
     Indication: Parenteral nutrition
     Dosage: COMPOUND BAG FOR 7 NIGHTS
     Route: 065
  11. WATER FOR INJECTION [Suspect]
     Active Substance: WATER
     Indication: Parenteral nutrition
     Dosage: COMPOUND BAG FOR 7 NIGHTS
     Route: 065
  12. UNSPECIFIED INGREDIENT [Suspect]
     Active Substance: UNSPECIFIED INGREDIENT
     Dosage: UNK
     Route: 065
  13. PANTOPRAZOLE [Concomitant]
     Active Substance: PANTOPRAZOLE
     Dosage: 40 MG, DAILY
     Route: 042

REACTIONS (2)
  - Oedema peripheral [Not Recovered/Not Resolved]
  - Fluid retention [Not Recovered/Not Resolved]
